FAERS Safety Report 23591142 (Version 2)
Quarter: 2024Q1

REPORT INFORMATION
  Report Type: Spontaneous
  Country: FR (occurrence: FR)
  Receive Date: 20240304
  Receipt Date: 20240312
  Transmission Date: 20240410
  Serious: Yes (Other)
  Sender: FDA-Public Use
  Company Number: FR-BAYER-2024A028123

PATIENT
  Age: 43 Year
  Sex: Female

DRUGS (1)
  1. KYLEENA [Suspect]
     Active Substance: LEVONORGESTREL
     Indication: Contraception
     Dosage: 17.5?G/DAY
     Route: 015
     Dates: start: 20190110, end: 20240216

REACTIONS (2)
  - Device breakage [None]
  - Complication of device removal [Recovered/Resolved]

NARRATIVE: CASE EVENT DATE: 20240216
